FAERS Safety Report 7639474-1 (Version None)
Quarter: 2011Q3

REPORT INFORMATION
  Report Type: 
  Country: None (occurrence: None)
  Receive Date: 20110727
  Receipt Date: 20110722
  Transmission Date: 20111222
  Serious: Yes (Hospitalization)
  Sender: FDA-Public Use
  Company Number: US-GLAXOSMITHKLINE-A0938016A

PATIENT
  Age: 58 Year
  Sex: Male

DRUGS (9)
  1. NORVASC [Concomitant]
  2. LISINOPRIL [Concomitant]
  3. SEREVENT [Suspect]
     Indication: PRODUCT USED FOR UNKNOWN INDICATION
     Route: 055
     Dates: start: 20010101, end: 20110620
  4. FLOVENT [Suspect]
     Indication: PRODUCT USED FOR UNKNOWN INDICATION
     Route: 055
     Dates: start: 20010101, end: 20110620
  5. LANSOPRAZOLE [Concomitant]
  6. RANITIDINE [Concomitant]
  7. VYTORIN [Concomitant]
  8. SPIRIVA [Suspect]
     Indication: PRODUCT USED FOR UNKNOWN INDICATION
     Route: 055
     Dates: start: 20100101, end: 20110601
  9. BENICAR [Concomitant]

REACTIONS (10)
  - ERYTHEMA [None]
  - VISUAL IMPAIRMENT [None]
  - DRY MOUTH [None]
  - SWOLLEN TONGUE [None]
  - VISION BLURRED [None]
  - ELECTROCARDIOGRAM ABNORMAL [None]
  - HEADACHE [None]
  - PALPITATIONS [None]
  - OCULAR HYPERAEMIA [None]
  - LIP SWELLING [None]
